FAERS Safety Report 25098264 (Version 1)
Quarter: 2025Q1

REPORT INFORMATION
  Report Type: Spontaneous
  Country: AU (occurrence: AU)
  Receive Date: 20250320
  Receipt Date: 20250320
  Transmission Date: 20250408
  Serious: Yes (Hospitalization)
  Sender: CIPLA
  Company Number: AU-CIPLA LTD.-2025AU03295

PATIENT

DRUGS (1)
  1. PREGABALIN [Suspect]
     Active Substance: PREGABALIN
     Indication: Product used for unknown indication
     Route: 065

REACTIONS (2)
  - Blister [Unknown]
  - Erythema [Unknown]

NARRATIVE: CASE EVENT DATE: 20241121
